FAERS Safety Report 9467450 (Version 2)
Quarter: 2014Q1

REPORT INFORMATION
  Report Type: Report from Study
  Country: US (occurrence: US)
  Receive Date: 20130821
  Receipt Date: 20140115
  Transmission Date: 20141002
  Serious: Yes (Death, Hospitalization)
  Sender: FDA-Public Use
  Company Number: PHEH2013US017654

PATIENT
  Sex: Male

DRUGS (1)
  1. GLEEVEC [Suspect]
     Indication: CHRONIC MYELOID LEUKAEMIA
     Dosage: 100 MG, QD
     Route: 048

REACTIONS (5)
  - Multi-organ failure [Fatal]
  - Clostridium difficile infection [Fatal]
  - Renal failure chronic [Fatal]
  - Sepsis [Fatal]
  - Chronic myeloid leukaemia [Fatal]
